FAERS Safety Report 5830427-2 (Version None)
Quarter: 2008Q3

REPORT INFORMATION
  Report Type: 
  Country: None (occurrence: None)
  Receive Date: 20080801
  Receipt Date: 20080723
  Transmission Date: 20090109
  Serious: Yes (Hospitalization)
  Sender: FDA-Public Use
  Company Number: CA-JNJFOC-20080701854

PATIENT
  Sex: Male
  Weight: 125 kg

DRUGS (10)
  1. REMICADE [Suspect]
     Route: 042
  2. REMICADE [Suspect]
     Route: 042
  3. REMICADE [Suspect]
     Route: 042
  4. REMICADE [Suspect]
     Indication: PSORIASIS
     Route: 042
  5. APO TRIAZIDE [Concomitant]
  6. GEN-GLYB [Concomitant]
  7. VASOTEC [Concomitant]
  8. NOVASEN [Concomitant]
     Dosage: 300-325 MG ONCE DAILY
  9. QUININE ODAN [Concomitant]
  10. APO-HYDROXYLZINE [Concomitant]

REACTIONS (4)
  - BRAIN NEOPLASM MALIGNANT [None]
  - HEPATIC NEOPLASM MALIGNANT [None]
  - LUNG NEOPLASM MALIGNANT [None]
  - PNEUMONIA [None]
